FAERS Safety Report 5947515-2 (Version None)
Quarter: 2008Q4

REPORT INFORMATION
  Report Type: 
  Country: None (occurrence: None)
  Receive Date: 20081110
  Receipt Date: 20081031
  Transmission Date: 20090506
  Serious: Yes (Other)
  Sender: FDA-Public Use
  Company Number: PHHY2008BR26885

PATIENT
  Age: 75 Year
  Sex: Female

DRUGS (2)
  1. FORASEQ [Suspect]
     Indication: ASTHMA
     Dosage: 2 INHALATIONS/DAY
     Dates: start: 20080801, end: 20081001
  2. MODURETIC 5-50 [Concomitant]

REACTIONS (2)
  - BLOOD PRESSURE INCREASED [None]
  - COUGH [None]
